FAERS Safety Report 9413790 (Version 1)
Quarter: 2013Q3

REPORT INFORMATION
  Report Type: Report from Study
  Country: DE (occurrence: DE)
  Receive Date: 20130723
  Receipt Date: 20130723
  Transmission Date: 20140515
  Serious: Yes (Other)
  Sender: FDA-Public Use
  Company Number: PHHO2012DE010524

PATIENT
  Age: 58 Year
  Sex: Male

DRUGS (1)
  1. QVA149 [Suspect]
     Indication: CHRONIC OBSTRUCTIVE PULMONARY DISEASE
     Dosage: 1 DF, QD (110/50 UG QD)
     Dates: start: 20120516, end: 20120704

REACTIONS (1)
  - Squamous cell carcinoma of pharynx [Recovered/Resolved]
